FAERS Safety Report 18797042 (Version 2)
Quarter: 2021Q1

REPORT INFORMATION
  Report Type: Spontaneous
  Country: CA (occurrence: CA)
  Receive Date: 20210127
  Receipt Date: 20210201
  Transmission Date: 20210419
  Serious: Yes (Other)
  Sender: FDA-Public Use
  Company Number: CA-JNJFOC-20210135579

PATIENT
  Age: 22 Year
  Sex: Female

DRUGS (9)
  1. ACETAMINOPHEN. [Concomitant]
     Active Substance: ACETAMINOPHEN
  2. REMICADE [Suspect]
     Active Substance: INFLIXIMAB
     Indication: COLITIS ULCERATIVE
     Route: 042
  3. CYANOCOBALAMIN. [Concomitant]
     Active Substance: CYANOCOBALAMIN
  4. ESCITALOPRAM [Concomitant]
     Active Substance: ESCITALOPRAM OXALATE
     Indication: DEPRESSION
  5. ATIVAN [Concomitant]
     Active Substance: LORAZEPAM
  6. FOLIC ACID. [Concomitant]
     Active Substance: FOLIC ACID
  7. GRAVOL [Concomitant]
     Active Substance: DIMENHYDRINATE
  8. VITAMINE C [Concomitant]
     Active Substance: ASCORBIC ACID
  9. VITAMIN D [ERGOCALCIFEROL] [Concomitant]
     Active Substance: ERGOCALCIFEROL

REACTIONS (15)
  - Muscle spasms [Unknown]
  - Thrombocytosis [Unknown]
  - Alanine aminotransferase increased [Unknown]
  - Drug level decreased [Unknown]
  - Off label use [Unknown]
  - Abdominal distension [Unknown]
  - Neutrophil count increased [Unknown]
  - Gastrointestinal inflammation [Unknown]
  - Product use issue [Unknown]
  - Lymphocytosis [Unknown]
  - Haemorrhage [Unknown]
  - White blood cell count increased [Unknown]
  - Viral infection [Unknown]
  - Condition aggravated [Unknown]
  - Drug ineffective [Unknown]
